FAERS Safety Report 14871134 (Version 2)
Quarter: 2020Q1

REPORT INFORMATION
  Report Type: Report from Study
  Country: AU (occurrence: AU)
  Receive Date: 20180509
  Receipt Date: 20200124
  Transmission Date: 20200409
  Serious: Yes (Hospitalization, Other)
  Sender: FDA-Public Use
  Company Number: PHHY2018AU077321

PATIENT
  Sex: Female

DRUGS (2)
  1. COSENTYX [Suspect]
     Active Substance: SECUKINUMAB
     Indication: PSORIASIS
     Dosage: 300 MG, QMO
     Route: 058
     Dates: start: 20171128
  2. COSENTYX [Suspect]
     Active Substance: SECUKINUMAB
     Dosage: UNK
     Route: 058
     Dates: start: 20180409

REACTIONS (7)
  - Poisoning [Recovering/Resolving]
  - Vomiting [Unknown]
  - Drug ineffective [Unknown]
  - Malaise [Recovering/Resolving]
  - Erythema [Not Recovered/Not Resolved]
  - Infection [Recovering/Resolving]
  - Localised infection [Unknown]
